FAERS Safety Report 15550977 (Version 1)
Quarter: 2018Q4

REPORT INFORMATION
  Report Type: Spontaneous
  Country: US (occurrence: US)
  Receive Date: 20181022
  Receipt Date: 20181022
  Transmission Date: 20190205
  Serious: No
  Sender: FDA-Public Use
  Company Number: None

PATIENT
  Age: 59 Year
  Sex: Male

DRUGS (2)
  1. CYCLOSPORINE MODIFIED [Suspect]
     Active Substance: CYCLOSPORINE
     Indication: HAEMATURIA
     Route: 048
     Dates: start: 201806
  2. CYCLOSPORINE MODIFIED [Suspect]
     Active Substance: CYCLOSPORINE
     Indication: CYSTITIS INTERSTITIAL
     Route: 048
     Dates: start: 201806

REACTIONS (2)
  - Product dose omission [None]
  - Product distribution issue [None]

NARRATIVE: CASE EVENT DATE: 20181019
